FAERS Safety Report 9925117 (Version 2)
Quarter: 2014Q2

REPORT INFORMATION
  Report Type: Spontaneous
  Country: US (occurrence: None)
  Receive Date: 20140221
  Receipt Date: 20140619
  Transmission Date: 20141212
  Serious: Yes (Other)
  Sender: FDA-Public Use
  Company Number: 2014-US-001859

PATIENT
  Age: 34 Year
  Sex: Female

DRUGS (3)
  1. XYREM [Suspect]
     Indication: NARCOLEPSY
     Route: 048
     Dates: start: 201303
  2. XYREM [Suspect]
     Indication: NARCOLEPSY
     Route: 048
     Dates: start: 201303
  3. MS CONTIN (MORPHIN SULFATE) [Concomitant]

REACTIONS (3)
  - Systemic lupus erythematosus [None]
  - Condition aggravated [None]
  - Rheumatoid arthritis [None]
